FAERS Safety Report 8646017 (Version 6)
Quarter: 2013Q3

REPORT INFORMATION
  Report Type: Spontaneous
  Country: US (occurrence: US)
  Receive Date: 20120702
  Receipt Date: 20130723
  Transmission Date: 20140515
  Serious: Yes (Hospitalization, Disabling, Other)
  Sender: FDA-Public Use
  Company Number: US-009507513-1206USA04858

PATIENT
  Sex: Male
  Weight: 49.89 kg

DRUGS (4)
  1. FOSAMAX [Suspect]
     Indication: OSTEOPOROSIS
     Dosage: 35 MG, UNK
     Route: 048
  2. FOSAMAX [Suspect]
     Indication: OSTEOPENIA
  3. FOSAMAX [Suspect]
     Indication: OSTEOGENESIS IMPERFECTA
  4. VITAMINS (UNSPECIFIED) [Concomitant]
     Dosage: UNK
     Dates: start: 1993

REACTIONS (53)
  - Femur fracture [Recovered/Resolved]
  - Femur fracture [Not Recovered/Not Resolved]
  - Open reduction of fracture [Unknown]
  - Open reduction of fracture [Unknown]
  - Open reduction of fracture [Unknown]
  - Low turnover osteopathy [Not Recovered/Not Resolved]
  - Osteoporosis [Not Recovered/Not Resolved]
  - Elbow operation [Unknown]
  - Elbow operation [Unknown]
  - Stress fracture [Not Recovered/Not Resolved]
  - Femur fracture [Not Recovered/Not Resolved]
  - Ulna fracture [Recovered/Resolved]
  - Ulna fracture [Unknown]
  - Influenza [Unknown]
  - Upper limb fracture [Unknown]
  - Upper limb fracture [Unknown]
  - Paronychia [Unknown]
  - Polyuria [Unknown]
  - Polydipsia [Unknown]
  - Fatigue [Unknown]
  - Nail operation [Unknown]
  - Cellulitis [Unknown]
  - Staphylococcal infection [Unknown]
  - Staphylococcal infection [Unknown]
  - Enuresis [Unknown]
  - Urine uric acid increased [Unknown]
  - Keloid scar [Unknown]
  - Muscle strain [Unknown]
  - Anaesthesia [Unknown]
  - Upper limb fracture [Unknown]
  - Sinusitis [Unknown]
  - Rhinitis allergic [Unknown]
  - Hand fracture [Unknown]
  - Body height below normal [Unknown]
  - Underweight [Unknown]
  - Radius fracture [Recovering/Resolving]
  - Fall [Unknown]
  - Fall [Unknown]
  - Medical device complication [Unknown]
  - Foot fracture [Recovered/Resolved]
  - Foot fracture [Unknown]
  - Radius fracture [Recovered/Resolved]
  - Fall [Unknown]
  - Keloid scar [Unknown]
  - Bursitis [Unknown]
  - Contusion [Unknown]
  - Chest pain [Unknown]
  - Ankle fracture [Unknown]
  - Tooth extraction [Unknown]
  - Inappropriate schedule of drug administration [Unknown]
  - Head injury [Unknown]
  - Dental prosthesis placement [Unknown]
  - Off label use [Unknown]
